FAERS Safety Report 16131834 (Version 1)
Quarter: 2019Q1

REPORT INFORMATION
  Report Type: Spontaneous
  Country: GB (occurrence: GB)
  Receive Date: 20190329
  Receipt Date: 20190329
  Transmission Date: 20190418
  Serious: Yes (Disabling, Other)
  Sender: FDA-Public Use
  Company Number: GB-AUROBINDO-AUR-APL-2019-016528

PATIENT

DRUGS (1)
  1. AMOXICILLIN+CLAVULANIC ACID 500/125MG [Suspect]
     Active Substance: AMOXICILLIN\CLAVULANIC ACID
     Indication: INFECTION
     Dosage: 3 DOSAGE FORM, DAILY
     Route: 048
     Dates: start: 20190302

REACTIONS (3)
  - Diarrhoea [Not Recovered/Not Resolved]
  - Flank pain [Unknown]
  - Abdominal pain [Unknown]

NARRATIVE: CASE EVENT DATE: 20190302
